FAERS Safety Report 16259197 (Version 2)
Quarter: 2019Q2

REPORT INFORMATION
  Report Type: Spontaneous
  Country: JP (occurrence: JP)
  Receive Date: 20190501
  Receipt Date: 20190620
  Transmission Date: 20190711
  Serious: Yes (Death, Hospitalization, Other)
  Sender: FDA-Public Use
  Company Number: JP-BRISTOL-MYERS SQUIBB COMPANY-BMS-2019-041801

PATIENT
  Age: 74 Year
  Sex: Male

DRUGS (1)
  1. OPDIVO [Suspect]
     Active Substance: NIVOLUMAB
     Indication: LUNG ADENOCARCINOMA
     Dosage: 2 MILLIGRAM/KILOGRAM
     Route: 065

REACTIONS (4)
  - Myocardial necrosis [Unknown]
  - Prescribed underdose [Unknown]
  - Cardiac failure acute [Fatal]
  - Malignant neoplasm progression [Unknown]
